FAERS Safety Report 23294284 (Version 1)
Quarter: 2023Q4

REPORT INFORMATION
  Report Type: Spontaneous
  Country: ES (occurrence: ES)
  Receive Date: 20231213
  Receipt Date: 20231213
  Transmission Date: 20240110
  Serious: Yes (Death)
  Sender: FDA-Public Use
  Company Number: None

PATIENT
  Age: 62 Year
  Sex: Male

DRUGS (2)
  1. IRINOTECAN [Suspect]
     Active Substance: IRINOTECAN
     Indication: Glioblastoma multiforme
     Route: 042
     Dates: start: 20231027, end: 20231027
  2. BEVACIZUMAB [Suspect]
     Active Substance: BEVACIZUMAB
     Indication: Glioblastoma multiforme
     Route: 042
     Dates: start: 20231027, end: 20231027

REACTIONS (2)
  - Fascicular block [Fatal]
  - Sudden death [Fatal]

NARRATIVE: CASE EVENT DATE: 20231107
